FAERS Safety Report 12281285 (Version 1)
Quarter: 2016Q2

REPORT INFORMATION
  Report Type: Spontaneous
  Country: CN (occurrence: CN)
  Receive Date: 20160419
  Receipt Date: 20160419
  Transmission Date: 20160815
  Serious: Yes (Other)
  Sender: FDA-Public Use
  Company Number: CN-WATSON-2016-08247

PATIENT
  Age: 56 Year
  Sex: Female

DRUGS (20)
  1. CYCLOPHOSPHAMIDE. [Suspect]
     Active Substance: CYCLOPHOSPHAMIDE
     Indication: LYMPHOMA
     Dosage: 1000 MG, CYCLICAL (CTOAP: DAY 1)
     Route: 042
  2. CYCLOPHOSPHAMIDE. [Suspect]
     Active Substance: CYCLOPHOSPHAMIDE
     Indication: DISEASE PROGRESSION
  3. EPIRUBICIN [Concomitant]
     Active Substance: EPIRUBICIN
     Indication: NON-HODGKIN^S LYMPHOMA STAGE III
     Dosage: 120 MG, CYCLICAL
     Route: 042
  4. CYTARABINE (UNKNOWN) [Suspect]
     Active Substance: CYTARABINE
     Indication: DISEASE PROGRESSION
     Dosage: 200 MG, UNK(CTOAP DAY1-7)
     Route: 042
  5. LASPAR [Concomitant]
     Indication: B-CELL LYMPHOMA STAGE II
     Dosage: 10000U QOD X 5;Q21D
     Route: 042
  6. VINCRISTINE (UNKNOWN) [Suspect]
     Active Substance: VINCRISTINE
     Indication: NON-HODGKIN^S LYMPHOMA STAGE III
     Dosage: 2 MG, CYCLICAL ( CHOP DAY 1, DOCPL DAY 1, CTOAP DAY 1
     Route: 042
  7. PREDNISOLONE (UNKNOWN) [Suspect]
     Active Substance: PREDNISOLONE
     Indication: NON-HODGKIN^S LYMPHOMA STAGE III
     Dosage: 100 MG PO QD D1-5 Q21D
     Route: 048
  8. PREDNISOLONE (UNKNOWN) [Suspect]
     Active Substance: PREDNISOLONE
     Indication: B-CELL LYMPHOMA STAGE III
     Dosage: 60MG PO QD
     Route: 048
  9. PREDNISOLONE (UNKNOWN) [Suspect]
     Active Substance: PREDNISOLONE
     Dosage: 60MG PO QD D1-14; Q21D
     Route: 048
  10. DEXAMETHASONE (UNKNOWN) [Suspect]
     Active Substance: DEXAMETHASONE
     Indication: PROPHYLAXIS
     Dosage: 5 MG, UNKNOWN
     Route: 065
  11. CYCLOPHOSPHAMIDE. [Suspect]
     Active Substance: CYCLOPHOSPHAMIDE
     Indication: NON-HODGKIN^S LYMPHOMA STAGE III
     Dosage: 1100 MG, CYCLICAL(  CHOP: DAY 1)
     Route: 042
  12. PIRARUBICIN [Suspect]
     Active Substance: PIRARUBICIN
     Indication: B-CELL LYMPHOMA STAGE II
     Dosage: 30 MG, CYCLICAL(DOCPL,DAY 1-3)
     Route: 042
  13. PIRARUBICIN [Suspect]
     Active Substance: PIRARUBICIN
     Indication: DISEASE PROGRESSION
  14. METHOTREXATE (METHOTREXATE SODIUM) [Suspect]
     Active Substance: METHOTREXATE SODIUM
     Indication: PROPHYLAXIS
     Dosage: 10 MG, UNKNOWN
     Route: 037
  15. PIRARUBICIN [Suspect]
     Active Substance: PIRARUBICIN
     Indication: LYMPHOMA
     Dosage: 40 MG, CYCLICAL( CTOAP, DAY1-3)
     Route: 042
  16. VINCRISTINE (UNKNOWN) [Suspect]
     Active Substance: VINCRISTINE
     Indication: B-CELL LYMPHOMA STAGE II
  17. LASPAR [Concomitant]
     Indication: LYMPHOMA
     Dosage: 10000U QOD X 5;Q21D
     Route: 042
  18. PREDNISOLONE (UNKNOWN) [Suspect]
     Active Substance: PREDNISOLONE
     Dosage: 60 MG, UNK
     Route: 048
  19. CYCLOPHOSPHAMIDE. [Suspect]
     Active Substance: CYCLOPHOSPHAMIDE
     Indication: B-CELL LYMPHOMA STAGE II
     Dosage: 800 MG, CYCLICAL (DOCPL:DAY 1)
     Route: 042
  20. SALINE                             /00075401/ [Concomitant]
     Active Substance: SODIUM CHLORIDE
     Indication: PROPHYLAXIS
     Dosage: 2 ML, UNK
     Route: 065

REACTIONS (4)
  - Fatigue [Unknown]
  - Decreased appetite [Unknown]
  - Bone marrow failure [Unknown]
  - Asthenia [Unknown]
